FAERS Safety Report 21665471 (Version 1)
Quarter: 2022Q4

REPORT INFORMATION
  Report Type: Report from Study
  Country: US (occurrence: US)
  Receive Date: 20221201
  Receipt Date: 20221201
  Transmission Date: 20230112
  Serious: No
  Sender: FDA-Public Use
  Company Number: US-ABBVIE-4181809

PATIENT
  Sex: Female

DRUGS (2)
  1. ORIAHNN [Suspect]
     Active Substance: ELAGOLIX SODIUM\ESTRADIOL\NORETHINDRONE
     Indication: Uterine leiomyoma
     Dosage: THE DRUG START DATE WAS SEP 2022.
     Route: 048
  2. ORIAHNN [Suspect]
     Active Substance: ELAGOLIX SODIUM\ESTRADIOL\NORETHINDRONE
     Indication: Uterine leiomyoma
     Dosage: THE DRUG START DATE WAS SEP 2022.
     Route: 048

REACTIONS (3)
  - Menstruation irregular [Not Recovered/Not Resolved]
  - Menstruation delayed [Unknown]
  - Intermenstrual bleeding [Unknown]

NARRATIVE: CASE EVENT DATE: 20220101
